FAERS Safety Report 15737392 (Version 2)
Quarter: 2019Q1

REPORT INFORMATION
  Report Type: Spontaneous
  Country: TR (occurrence: TR)
  Receive Date: 20181218
  Receipt Date: 20190104
  Transmission Date: 20190417
  Serious: Yes (Congenital Anomaly)
  Sender: FDA-Public Use
  Company Number: TR-JNJFOC-20181219173

PATIENT
  Sex: Male

DRUGS (6)
  1. CETIRIZINE HYDROCHLORIDE. [Suspect]
     Active Substance: CETIRIZINE HYDROCHLORIDE
     Indication: SINUSITIS
     Route: 064
  2. CETIRIZINE HYDROCHLORIDE. [Suspect]
     Active Substance: CETIRIZINE HYDROCHLORIDE
     Route: 064
  3. PSEUDOEPHEDRINE HYDROCHLORIDE. [Suspect]
     Active Substance: PSEUDOEPHEDRINE HYDROCHLORIDE
     Indication: SINUSITIS
     Route: 064
  4. ESTRADIOL W/NORETHISTERONE [Suspect]
     Active Substance: ESTRADIOL\NORETHINDRONE ACETATE
     Indication: CONTRACEPTION
     Dosage: 5/50 MG/D; ONCE IN WEEK 5
     Route: 064
  5. FLURBIPROFEN. [Suspect]
     Active Substance: FLURBIPROFEN
     Indication: SINUSITIS
     Route: 064
  6. LEVOFLOXACIN. [Suspect]
     Active Substance: LEVOFLOXACIN
     Indication: SINUSITIS
     Route: 064

REACTIONS (2)
  - Cryptorchism [Unknown]
  - Foetal exposure during pregnancy [Unknown]
